FAERS Safety Report 4851100-3 (Version None)
Quarter: 2005Q4

REPORT INFORMATION
  Report Type: 
  Country: None (occurrence: None)
  Receive Date: 20051212
  Receipt Date: 20051201
  Transmission Date: 20060501
  Serious: Yes (Other)
  Sender: FDA-Public Use
  Company Number: AU-JNJFOC-20051200311

PATIENT
  Sex: Female

DRUGS (13)
  1. RISPERDAL [Suspect]
     Route: 048
  2. TRAMADOL HCL [Concomitant]
  3. UNSPECIFIED MEDICATIONS [Concomitant]
  4. MAGNESIUM [Concomitant]
  5. WARFARIN SODIUM [Concomitant]
  6. AMILODIPINE [Concomitant]
  7. COLOXYL [Concomitant]
  8. TRANSDERM-NITRO [Concomitant]
  9. PARACETAMOL [Concomitant]
  10. CALTRATE [Concomitant]
  11. KEFLEX [Concomitant]
  12. VALIUM [Concomitant]
  13. PANTOPRAZOLE [Concomitant]

REACTIONS (1)
  - HYPERKALAEMIA [None]
